FAERS Safety Report 10634376 (Version 1)
Quarter: 2014Q4

REPORT INFORMATION
  Report Type: Spontaneous
  Country: US (occurrence: None)
  Receive Date: 20141203
  Receipt Date: 20141203
  Transmission Date: 20150529
  Serious: Yes (Hospitalization)
  Sender: FDA-Public Use
  Company Number: None

PATIENT
  Age: 64 Year
  Sex: Female
  Weight: 108.5 kg

DRUGS (1)
  1. TAXOL [Suspect]
     Active Substance: PACLITAXEL
     Dates: end: 20141118

REACTIONS (5)
  - Muscular weakness [None]
  - Fatigue [None]
  - Pulmonary embolism [None]
  - Deep vein thrombosis [None]
  - Nasopharyngitis [None]

NARRATIVE: CASE EVENT DATE: 20141126
